FAERS Safety Report 7488259-8 (Version None)
Quarter: 2011Q2

REPORT INFORMATION
  Report Type: 
  Country: None (occurrence: None)
  Receive Date: 20110511
  Receipt Date: 20110426
  Transmission Date: 20111010
  Serious: Yes (Death)
  Sender: FDA-Public Use
  Company Number: 030927

PATIENT
  Sex: Female

DRUGS (3)
  1. VIMPAT [Suspect]
     Indication: EPILEPSY
     Dosage: 50 MG BID, ORAL
     Route: 048
     Dates: start: 20110307, end: 20110314
  2. EPHENHYDAN (PHENHYDAN (NOT SPECIFIED) [Suspect]
     Indication: EPILEPSY
     Dosage: 250 MG TID ORAL
     Route: 048
     Dates: end: 20110314
  3. KEPPRA [Suspect]
     Indication: EPILEPSY
     Dosage: 500 MG QD, ORAL
     Route: 048
     Dates: start: 20100915, end: 20110314

REACTIONS (3)
  - MEAN CELL VOLUME INCREASED [None]
  - NEOPLASM [None]
  - GAMMA-GLUTAMYLTRANSFERASE INCREASED [None]
